FAERS Safety Report 8599247-2 (Version None)
Quarter: 2012Q3

REPORT INFORMATION
  Report Type: 
  Country: None (occurrence: None)
  Receive Date: 20120816
  Receipt Date: 20111108
  Transmission Date: 20120928
  Serious: No
  Sender: FDA-Public Use
  Company Number: US-AMGEN-USASP2011059014

PATIENT
  Age: 54 Year
  Sex: Male
  Weight: 82 kg

DRUGS (4)
  1. ZOMETA [Concomitant]
  2. VELCADE [Concomitant]
  3. DEXAMETHASONE [Concomitant]
  4. NEUPOGEN [Suspect]
     Indication: PERIPHERAL BLOOD STEM CELL APHERESIS
     Dosage: 960 MUG, QD
     Dates: start: 20111029

REACTIONS (1)
  - DRUG EFFECT DECREASED [None]
